FAERS Safety Report 5507625-0 (Version None)
Quarter: 2007Q4

REPORT INFORMATION
  Report Type: 
  Country: None (occurrence: None)
  Receive Date: 20071105
  Receipt Date: 20071105
  Transmission Date: 20080405
  Serious: Yes (Hospitalization)
  Sender: FDA-Public Use
  Company Number: None

PATIENT
  Age: 27 Year
  Sex: Female
  Weight: 61.2356 kg

DRUGS (1)
  1. CLOZAPINE [Suspect]

REACTIONS (1)
  - MUSCLE SPASMS [None]
